FAERS Safety Report 20910561 (Version 1)
Quarter: 2022Q2

REPORT INFORMATION
  Report Type: Spontaneous
  Country: US (occurrence: US)
  Receive Date: 20220603
  Receipt Date: 20220603
  Transmission Date: 20220720
  Serious: No
  Sender: FDA-Public Use
  Company Number: US-STRIDES ARCOLAB LIMITED-2022SP001316

PATIENT
  Age: 52 Year
  Sex: Female

DRUGS (9)
  1. MINOCYCLINE [Suspect]
     Active Substance: MINOCYCLINE HYDROCHLORIDE
     Indication: Cutaneous sarcoidosis
     Dosage: UNK, FOR LUPUS PERNIO DURING 2012
     Route: 065
     Dates: start: 2012
  2. MINOCYCLINE [Suspect]
     Active Substance: MINOCYCLINE HYDROCHLORIDE
     Indication: Neuralgia
     Dosage: 100 MILLIGRAM, BID FOR SPASTIC NEUROPATHIC PAIN
     Route: 065
     Dates: start: 201407, end: 2019
  3. MINOCYCLINE [Suspect]
     Active Substance: MINOCYCLINE HYDROCHLORIDE
     Indication: Muscle spasticity
  4. CEPHALEXIN [Suspect]
     Active Substance: CEPHALEXIN
     Indication: Neuralgia
     Dosage: 500 MILLIGRAM, BID
     Route: 065
     Dates: start: 2019
  5. CEPHALEXIN [Suspect]
     Active Substance: CEPHALEXIN
     Indication: Muscle spasticity
  6. METHADONE [Concomitant]
     Active Substance: METHADONE HYDROCHLORIDE
     Indication: Restless legs syndrome
     Dosage: UNK, AT BED TIME
     Route: 065
  7. INFLIXIMAB [Concomitant]
     Active Substance: INFLIXIMAB
     Indication: Neurosarcoidosis
     Dosage: UNK
     Route: 065
  8. METHOTREXATE [Concomitant]
     Active Substance: METHOTREXATE
     Indication: Neurosarcoidosis
     Dosage: UNK
     Route: 065
  9. BACLOFEN [Concomitant]
     Active Substance: BACLOFEN
     Indication: Muscle spasticity
     Dosage: UNK
     Route: 037

REACTIONS (2)
  - Skin hyperpigmentation [Recovered/Resolved]
  - Off label use [Unknown]

NARRATIVE: CASE EVENT DATE: 20190101
